FAERS Safety Report 9366088 (Version 2)
Quarter: 2013Q3

REPORT INFORMATION
  Report Type: Spontaneous
  Country: US (occurrence: US)
  Receive Date: 20130625
  Receipt Date: 20130725
  Transmission Date: 20140515
  Serious: Yes (Hospitalization)
  Sender: FDA-Public Use
  Company Number: US-VERTEX PHARMACEUTICALS INC-2013-007405

PATIENT
  Age: 56 Year
  Sex: Female
  Weight: 55 kg

DRUGS (6)
  1. INCIVEK [Suspect]
     Indication: HEPATITIS C
     Dosage: 750 MG, TID
     Route: 048
     Dates: start: 20130608, end: 20130621
  2. INCIVEK [Suspect]
     Dosage: 750 MG, TID
     Route: 048
  3. COPEGUS [Suspect]
     Indication: HEPATITIS C
     Dosage: 3 TABS AM, 2 TABS PM
     Dates: start: 20130608, end: 20130621
  4. COPEGUS [Suspect]
     Dosage: 200 MG, BID
     Dates: start: 201307
  5. PEGASYS [Suspect]
     Indication: HEPATITIS C
     Dosage: 180 ?G, QW
     Dates: start: 20130607, end: 20130621
  6. PEGASYS [Suspect]
     Dosage: 90 ?G, QW
     Dates: start: 201307

REACTIONS (7)
  - Haemoglobin decreased [Not Recovered/Not Resolved]
  - Dyspnoea [Not Recovered/Not Resolved]
  - Dizziness [Recovered/Resolved]
  - Mouth ulceration [Recovered/Resolved]
  - Asthenia [Not Recovered/Not Resolved]
  - Rash erythematous [Recovered/Resolved]
  - Skin exfoliation [Recovered/Resolved]
